FAERS Safety Report 8772077 (Version 1)
Quarter: 2012Q4

REPORT INFORMATION
  Report Type: 
  Country: US (occurrence: US)
  Receive Date: 20120906
  Receipt Date: 20120906
  Transmission Date: 20130627
  Serious: No
  Sender: FDA-Public Use
  Company Number: US-009507513-1208USA010280

PATIENT

DRUGS (6)
  1. SAPHRIS [Suspect]
     Indication: SCHIZOPHRENIA
     Dosage: 15 mg, qd
     Route: 060
  2. MOBAN [Concomitant]
  3. ARTANE [Concomitant]
  4. WELLBUTRIN [Concomitant]
  5. TRANXENE [Concomitant]
  6. OMEPRAZOLE [Concomitant]

REACTIONS (1)
  - Oral disorder [Not Recovered/Not Resolved]
